FAERS Safety Report 8914252 (Version 1)
Quarter: 2012Q4

REPORT INFORMATION
  Report Type: 
  Country: US (occurrence: US)
  Receive Date: 20121119
  Receipt Date: 20121119
  Transmission Date: 20130627
  Serious: Yes (Other)
  Sender: FDA-Public Use
  Company Number: US-SANOFI-AVENTIS-2012SA081980

PATIENT
  Age: 70 Year
  Sex: Female

DRUGS (4)
  1. APIDRA SOLOSTAR [Suspect]
     Dosage: Dose:30 unit(s)
     Route: 058
     Dates: start: 2011
  2. SOLOSTAR [Suspect]
     Dates: start: 2011
  3. NOVOLOG [Suspect]
     Dosage: Dose:70 unit(s)
     Route: 065
  4. PREDNISONE [Suspect]
     Route: 065
     Dates: start: 20121106

REACTIONS (2)
  - Bronchitis [Not Recovered/Not Resolved]
  - Hyperglycaemia [Not Recovered/Not Resolved]
